FAERS Safety Report 9801499 (Version 2)
Quarter: 2014Q1

REPORT INFORMATION
  Report Type: Spontaneous
  Country: US (occurrence: US)
  Receive Date: 20140107
  Receipt Date: 20140107
  Transmission Date: 20141002
  Serious: No
  Sender: FDA-Public Use
  Company Number: US-GILEAD-US-CVT-100463

PATIENT
  Sex: Male

DRUGS (10)
  1. RANEXA [Suspect]
     Indication: ANGINA PECTORIS
     Route: 048
  2. RANEXA [Suspect]
  3. COUMADIN [Concomitant]
  4. ASA [Concomitant]
  5. SIMVASTATIN [Concomitant]
  6. FUROSEMIDE                         /00032601/ [Concomitant]
  7. COREG CR [Concomitant]
  8. AZOR [Concomitant]
  9. GAS-X [Concomitant]
  10. BEANO [Concomitant]

REACTIONS (3)
  - International normalised ratio increased [Unknown]
  - Inappropriate schedule of drug administration [Unknown]
  - Drug ineffective [Unknown]
